FAERS Safety Report 5377051-6 (Version None)
Quarter: 2007Q2

REPORT INFORMATION
  Report Type: 
  Country: None (occurrence: None)
  Receive Date: 20070628
  Receipt Date: 20070628
  Transmission Date: 20071010
  Serious: No
  Sender: FDA-Public Use
  Company Number: None

PATIENT
  Age: 58 Year
  Sex: Male
  Weight: 100.2449 kg

DRUGS (1)
  1. LEVALBUTEROL HCL [Suspect]
     Indication: ASTHMA
     Dosage: 2 PUFFS Q4-6H PRN INHAL
     Route: 055
     Dates: start: 20060816, end: 20061231

REACTIONS (1)
  - PHARMACEUTICAL PRODUCT COMPLAINT [None]
